FAERS Safety Report 14708110 (Version 10)
Quarter: 2018Q3

REPORT INFORMATION
  Report Type: Spontaneous
  Country: US (occurrence: US)
  Receive Date: 20180403
  Receipt Date: 20180924
  Transmission Date: 20181010
  Serious: Yes (Hospitalization, Other)
  Sender: FDA-Public Use
  Company Number: US-PFIZER INC-2018134606

PATIENT
  Age: 70 Year
  Sex: Male
  Weight: 107.9 kg

DRUGS (15)
  1. METOPROLOL. [Concomitant]
     Active Substance: METOPROLOL
     Dosage: UNK
  2. NOVOLOG [Concomitant]
     Active Substance: INSULIN ASPART
     Dosage: UNK
  3. ALLOPURINOL. [Concomitant]
     Active Substance: ALLOPURINOL
     Dosage: UNK
  4. COZAAR [Concomitant]
     Active Substance: LOSARTAN POTASSIUM
     Dosage: UNK
  5. GABAPENTIN. [Concomitant]
     Active Substance: GABAPENTIN
     Dosage: UNK
  6. LOSARTAN. [Concomitant]
     Active Substance: LOSARTAN
     Dosage: UNK
  7. OMEPRAZOLE. [Concomitant]
     Active Substance: OMEPRAZOLE
     Dosage: UNK
  8. PRAVASTATIN. [Concomitant]
     Active Substance: PRAVASTATIN
     Dosage: UNK
  9. PRILOSEC [Concomitant]
     Active Substance: OMEPRAZOLE MAGNESIUM
     Dosage: UNK
  10. SUTENT [Suspect]
     Active Substance: SUNITINIB MALATE
     Dosage: 50 MG, CYCLIC [2 WEEKS ON/1 WEEK OFF]
     Dates: start: 20180522
  11. SUTENT [Suspect]
     Active Substance: SUNITINIB MALATE
     Indication: RENAL CANCER METASTATIC
     Dosage: 50 MG, CYCLIC (28 DAYS ON/14 DAYS OFF)
     Dates: start: 20180312, end: 20180423
  12. SUTENT [Suspect]
     Active Substance: SUNITINIB MALATE
     Dosage: 50 MG, CYCLIC (28 DAYS ON/14 DAYS OFF)
     Dates: start: 20180522
  13. METFORMIN [Concomitant]
     Active Substance: METFORMIN HYDROCHLORIDE
     Dosage: UNK
  14. BABY ASPIRIN [Concomitant]
     Active Substance: ASPIRIN
     Dosage: UNK
  15. LANTUS [Concomitant]
     Active Substance: INSULIN GLARGINE
     Dosage: UNK

REACTIONS (33)
  - Oral pain [Unknown]
  - Stress [Unknown]
  - Dysgeusia [Recovering/Resolving]
  - Hypoaesthesia [Unknown]
  - Yellow skin [Recovering/Resolving]
  - Back disorder [Unknown]
  - Pain in extremity [Unknown]
  - Renal impairment [Unknown]
  - Fall [Unknown]
  - Constipation [Unknown]
  - Alopecia [Recovering/Resolving]
  - Balance disorder [Unknown]
  - Cognitive disorder [Unknown]
  - Dyspepsia [Unknown]
  - Platelet count decreased [Recovered/Resolved]
  - Rash [Unknown]
  - Parosmia [Unknown]
  - Eating disorder [Recovering/Resolving]
  - Ageusia [Unknown]
  - Arthralgia [Recovered/Resolved]
  - Feeling cold [Unknown]
  - Fatigue [Recovering/Resolving]
  - Abdominal discomfort [Unknown]
  - Glossodynia [Unknown]
  - Decreased appetite [Recovering/Resolving]
  - Dyspnoea [Unknown]
  - Sleep disorder [Not Recovered/Not Resolved]
  - Dry mouth [Unknown]
  - Back pain [Unknown]
  - Blood glucose increased [Recovering/Resolving]
  - Blood glucose decreased [Recovered/Resolved]
  - Diarrhoea [Unknown]
  - Weight decreased [Unknown]

NARRATIVE: CASE EVENT DATE: 20180408
